FAERS Safety Report 5337175-6 (Version None)
Quarter: 2007Q1

REPORT INFORMATION
  Report Type: 
  Country: None (occurrence: None)
  Receive Date: 20070315
  Receipt Date: 20070103
  Transmission Date: 20070707
  Serious: Yes (Other)
  Sender: FDA-Public Use
  Company Number: PHEH2006US10603

PATIENT
  Age: 60 Year
  Sex: Male

DRUGS (2)
  1. TRILEPTAL [Suspect]
     Indication: EPILEPSY
     Dosage: 600 MG BID INTRAGASTRIC
     Dates: start: 20051101
  2. DEPAKOTE [Suspect]
     Indication: CONVULSION
     Dosage: 250 MG TID INTRAGASTRIC
     Dates: start: 20051101

REACTIONS (5)
  - HYPONATRAEMIA [None]
  - LEUKOPENIA [None]
  - NEUTROPENIA [None]
  - NEUTROPHIL COUNT DECREASED [None]
  - WHITE BLOOD CELL COUNT DECREASED [None]
